FAERS Safety Report 5815724-9 (Version None)
Quarter: 2008Q3

REPORT INFORMATION
  Report Type: 
  Country: None (occurrence: None)
  Receive Date: 20080721
  Receipt Date: 20080717
  Transmission Date: 20090109
  Serious: Yes (Hospitalization)
  Sender: FDA-Public Use
  Company Number: US-BRISTOL-MYERS SQUIBB COMPANY-14267595

PATIENT
  Sex: Female
  Weight: 57 kg

DRUGS (3)
  1. TAXOL [Suspect]
     Indication: NEOPLASM MALIGNANT
     Dosage: START DATE OF FIRST COURSE ON 14APR08, PROTOCOL PRESCRIBED DOSE-150MG/M2
     Dates: start: 20080512, end: 20080512
  2. CARBOPLATIN [Suspect]
     Indication: NEOPLASM MALIGNANT
     Dosage: START DATE OF FIRST COURSE ON 14APR08, PROTOCOL PRESCRIBED DOSE-AUC 45
     Dates: start: 20080512, end: 20080512
  3. ETOPOSIDE [Suspect]
     Indication: NEOPLASM MALIGNANT
     Dosage: START DATE OF FIRST COURSE ON 14APR08,, PROTOCOL PRESCRIBED DOSE-50 MG PO QD
     Route: 048
     Dates: start: 20080521, end: 20080521

REACTIONS (5)
  - ASTHENIA [None]
  - COUGH [None]
  - DUODENAL ULCER [None]
  - OESOPHAGEAL CANDIDIASIS [None]
  - PANCYTOPENIA [None]
